FAERS Safety Report 10021307 (Version 1)
Quarter: 2014Q1

REPORT INFORMATION
  Report Type: Spontaneous
  Country: JP (occurrence: JP)
  Receive Date: 20140319
  Receipt Date: 20140319
  Transmission Date: 20141002
  Serious: Yes (Hospitalization)
  Sender: FDA-Public Use
  Company Number: JP-SA-2014SA032467

PATIENT
  Age: 84 Year
  Sex: Female

DRUGS (6)
  1. ASPIRIN [Suspect]
     Indication: CORONARY ARTERY STENOSIS
     Route: 065
  2. ASPIRIN [Suspect]
     Indication: ATRIAL FIBRILLATION
     Route: 065
  3. CLOPIDOGREL BISULFATE [Suspect]
     Indication: CORONARY ARTERY STENOSIS
     Route: 065
  4. CLOPIDOGREL BISULFATE [Suspect]
     Indication: ATRIAL FIBRILLATION
     Route: 065
  5. WARFARIN SODIUM [Suspect]
     Indication: CORONARY ARTERY STENOSIS
     Route: 065
  6. WARFARIN SODIUM [Suspect]
     Indication: ATRIAL FIBRILLATION
     Route: 065

REACTIONS (5)
  - Subdural haematoma [Recovered/Resolved]
  - Brain herniation [Recovered/Resolved]
  - Respiration abnormal [Recovered/Resolved]
  - Depressed level of consciousness [Recovered/Resolved]
  - Coma [Recovered/Resolved]
